FAERS Safety Report 13502805 (Version 2)
Quarter: 2017Q2

REPORT INFORMATION
  Report Type: Report from Study
  Country: JP (occurrence: JP)
  Receive Date: 20170502
  Receipt Date: 20170627
  Transmission Date: 20170830
  Serious: Yes (Other)
  Sender: FDA-Public Use
  Company Number: JP-VIIV HEALTHCARE LIMITED-JP2017JPN062760

PATIENT
  Age: 5 Decade
  Sex: Male

DRUGS (9)
  1. BENZALIN TABLETS [Concomitant]
     Indication: HIV-ASSOCIATED NEUROCOGNITIVE DISORDER
     Dosage: 5 MG, QD
  2. QUETIAPINE. [Concomitant]
     Active Substance: QUETIAPINE
     Indication: HIV-ASSOCIATED NEUROCOGNITIVE DISORDER
     Dosage: 37.5 MG, BID
     Dates: end: 20160920
  3. DEPAKENE [Concomitant]
     Active Substance: VALPROIC ACID
     Indication: HIV-ASSOCIATED NEUROCOGNITIVE DISORDER
     Dosage: 200 MG, TID
     Dates: end: 20170207
  4. ISENTRESS [Concomitant]
     Active Substance: RALTEGRAVIR POTASSIUM
     Indication: HIV INFECTION
     Dosage: 400 MG, BID
     Dates: start: 20150811, end: 20161115
  5. NORVIR [Concomitant]
     Active Substance: RITONAVIR
     Indication: HIV INFECTION
     Dosage: 100 MG, 1D
     Dates: start: 20161116
  6. PREZISTANAIVE [Concomitant]
     Active Substance: DARUNAVIR
     Indication: HIV INFECTION
     Dosage: 800 MG, QD
     Dates: start: 20161116
  7. EPZICOM [Suspect]
     Active Substance: ABACAVIR SULFATE\LAMIVUDINE
     Indication: HIV INFECTION
     Dosage: 1 DF, 1D
     Route: 048
     Dates: start: 20150811, end: 20161115
  8. ABACAVIRSULPHATE+DOLUTEGRAVIR+LAMIVUDINE [Suspect]
     Active Substance: ABACAVIR SULFATE\DOLUTEGRAVIR SODIUM\LAMIVUDINE
     Indication: HIV INFECTION
     Dosage: 1 DF, 1D
     Route: 048
     Dates: start: 20161116
  9. BACTRAMIN [Concomitant]
     Active Substance: SULFAMETHOXAZOLE\TRIMETHOPRIM
     Indication: ANTIFUNGAL PROPHYLAXIS
     Dosage: 1 DF, QD
     Dates: end: 2016

REACTIONS (1)
  - Chronic kidney disease [Not Recovered/Not Resolved]

NARRATIVE: CASE EVENT DATE: 20150819
